FAERS Safety Report 7396583-2 (Version None)
Quarter: 2011Q2

REPORT INFORMATION
  Report Type: 
  Country: None (occurrence: None)
  Receive Date: 20110406
  Receipt Date: 20110325
  Transmission Date: 20111010
  Serious: Yes (Other)
  Sender: FDA-Public Use
  Company Number: PHHY2010DE05244

PATIENT
  Sex: Female

DRUGS (3)
  1. EXTAVIA [Suspect]
     Indication: MULTIPLE SCLEROSIS
     Dosage: 1 ML, QOD
     Route: 058
  2. EXTAVIA [Suspect]
     Dosage: 0.75 ML, QOD
     Route: 058
     Dates: start: 20090429, end: 20090501
  3. EXTAVIA [Suspect]
     Dosage: 1 ML, UNK
     Route: 058

REACTIONS (9)
  - TRIGEMINAL NEURALGIA [None]
  - MULTIPLE SCLEROSIS RELAPSE [None]
  - MUSCLE SPASTICITY [None]
  - HEADACHE [None]
  - CONDITION AGGRAVATED [None]
  - HYPERSENSITIVITY [None]
  - HYPERTENSION [None]
  - FATIGUE [None]
  - HEART RATE INCREASED [None]
